FAERS Safety Report 23288750 (Version 2)
Quarter: 2024Q1

REPORT INFORMATION
  Report Type: Report from Study
  Country: US (occurrence: US)
  Receive Date: 20231212
  Receipt Date: 20240213
  Transmission Date: 20240410
  Serious: No
  Sender: FDA-Public Use
  Company Number: US-SA-SAC20231206000462

PATIENT
  Age: 25 Year
  Sex: Female

DRUGS (2)
  1. DUPIXENT [Suspect]
     Active Substance: DUPILUMAB
     Indication: Asthma
     Dosage: 600 MG, 1X
     Route: 058
     Dates: start: 20231016, end: 20231016
  2. DUPIXENT [Suspect]
     Active Substance: DUPILUMAB
     Dosage: 300 MG, QOW
     Route: 058
     Dates: start: 2023, end: 2024

REACTIONS (10)
  - Coordination abnormal [Recovering/Resolving]
  - Paraesthesia [Recovering/Resolving]
  - Dysarthria [Recovering/Resolving]
  - Tremor [Recovering/Resolving]
  - Muscle spasms [Recovering/Resolving]
  - Pain [Recovering/Resolving]
  - Drug level increased [Recovering/Resolving]
  - Abdominal discomfort [Unknown]
  - Neuralgia [Unknown]
  - Headache [Unknown]

NARRATIVE: CASE EVENT DATE: 20231201
